FAERS Safety Report 22191818 (Version 2)
Quarter: 2023Q2

REPORT INFORMATION
  Report Type: Report from Study
  Country: PR (occurrence: PR)
  Receive Date: 20230410
  Receipt Date: 20230412
  Transmission Date: 20230722
  Serious: No
  Sender: FDA-Public Use
  Company Number: PR-ABBVIE-4722719

PATIENT
  Age: 58 Year
  Sex: Male
  Weight: 117.93 kg

DRUGS (2)
  1. VENCLEXTA [Suspect]
     Active Substance: VENETOCLAX
     Indication: Acute myeloid leukaemia
     Dosage: FORM STRENGTH: 100MG?THE FIRST DAY TOOK 1 PILL.?THE SECOND DAY TOOK 2?AFTER THE THIRD DAY TOOK 4
     Route: 048
     Dates: start: 202303
  2. AVAPRO [Concomitant]
     Active Substance: IRBESARTAN
     Indication: Blood pressure management
     Dosage: FORM STRENGTH: 150MG
     Route: 048

REACTIONS (4)
  - Headache [Not Recovered/Not Resolved]
  - Nausea [Not Recovered/Not Resolved]
  - Abdominal discomfort [Unknown]
  - Off label use [Unknown]

NARRATIVE: CASE EVENT DATE: 20230301
